FAERS Safety Report 23428319 (Version 1)
Quarter: 2024Q1

REPORT INFORMATION
  Report Type: Spontaneous
  Country: US (occurrence: US)
  Receive Date: 20240122
  Receipt Date: 20240122
  Transmission Date: 20240410
  Serious: Yes (Other)
  Sender: FDA-Public Use
  Company Number: US-SA-SAC00000000152059

PATIENT
  Age: 56 Year
  Sex: Female
  Weight: 100.2 kg

DRUGS (2)
  1. CAPRELSA [Suspect]
     Active Substance: VANDETANIB
     Indication: Thyroid cancer
     Dosage: 200 MG, QD
     Route: 048
     Dates: start: 20191018
  2. SELPERCATINIB [Concomitant]
     Active Substance: SELPERCATINIB
     Indication: Product used for unknown indication
     Dosage: UNK

REACTIONS (1)
  - Chronic kidney disease [Unknown]
